FAERS Safety Report 11293187 (Version 2)
Quarter: 2015Q3

REPORT INFORMATION
  Report Type: Spontaneous
  Country: GB (occurrence: GB)
  Receive Date: 20150722
  Receipt Date: 20150729
  Transmission Date: 20151125
  Serious: Yes (Hospitalization)
  Sender: FDA-Public Use
  Company Number: GB-ASTRAZENECA-2015SE69283

PATIENT
  Age: 42 Year
  Sex: Female
  Weight: 101.6 kg

DRUGS (1)
  1. FORXIGA [Suspect]
     Active Substance: DAPAGLIFLOZIN
     Indication: TYPE 2 DIABETES MELLITUS
     Route: 048
     Dates: start: 201501, end: 20150209

REACTIONS (3)
  - Diabetic ketoacidosis [Recovered/Resolved]
  - Influenza like illness [Unknown]
  - Vomiting [Unknown]

NARRATIVE: CASE EVENT DATE: 201501
